FAERS Safety Report 8534320 (Version 6)
Quarter: 2013Q3

REPORT INFORMATION
  Report Type: Spontaneous
  Country: US (occurrence: US)
  Receive Date: 20120427
  Receipt Date: 20130731
  Transmission Date: 20140515
  Serious: Yes (Hospitalization, Disabling, Other)
  Sender: FDA-Public Use
  Company Number: US-JNJFOC-20120407730

PATIENT
  Age: 62 Year
  Sex: Female
  Weight: 61.24 kg

DRUGS (13)
  1. REMICADE [Suspect]
     Indication: OSTEOARTHRITIS
     Route: 042
     Dates: end: 201203
  2. REMICADE [Suspect]
     Indication: OSTEOARTHRITIS
     Route: 042
     Dates: start: 200312, end: 20110725
  3. REMICADE [Suspect]
     Indication: OSTEOARTHRITIS
     Route: 042
     Dates: start: 20120419, end: 2012
  4. REMICADE [Suspect]
     Indication: RHEUMATOID ARTHRITIS
     Route: 042
     Dates: end: 201203
  5. REMICADE [Suspect]
     Indication: RHEUMATOID ARTHRITIS
     Route: 042
     Dates: start: 20120419, end: 2012
  6. REMICADE [Suspect]
     Indication: RHEUMATOID ARTHRITIS
     Route: 042
     Dates: start: 200312, end: 20110725
  7. PREDNISONE [Suspect]
     Indication: RHEUMATOID ARTHRITIS
     Route: 048
  8. UNSPECIFED MEDICATIONS [Concomitant]
     Route: 065
  9. BENADRYL [Concomitant]
     Indication: PREMEDICATION
     Route: 065
  10. ZANTAC [Concomitant]
     Indication: PREMEDICATION
     Route: 065
  11. METHOTREXATE [Concomitant]
     Indication: RHEUMATOID ARTHRITIS
     Route: 048
     Dates: start: 2005
  12. NEURONTIN [Concomitant]
     Indication: CONVULSION
     Route: 065
  13. DILANTIN [Concomitant]
     Indication: CONVULSION
     Route: 065

REACTIONS (15)
  - Sepsis [Recovered/Resolved with Sequelae]
  - Bronchoscopy [Unknown]
  - Tuberculosis [Recovered/Resolved]
  - Pneumonia [Recovered/Resolved]
  - Vomiting [Recovered/Resolved]
  - Rib fracture [Unknown]
  - Device related infection [Recovered/Resolved]
  - Clavicle fracture [Not Recovered/Not Resolved]
  - Body temperature increased [Unknown]
  - Sepsis [Recovered/Resolved]
  - Decreased immune responsiveness [Not Recovered/Not Resolved]
  - Herpes zoster [Recovered/Resolved]
  - Malaise [Unknown]
  - Headache [Recovered/Resolved]
  - Goitre [Not Recovered/Not Resolved]
